FAERS Safety Report 10791469 (Version 1)
Quarter: 2015Q1

REPORT INFORMATION
  Report Type: Spontaneous
  Country: US (occurrence: US)
  Receive Date: 20150213
  Receipt Date: 20150213
  Transmission Date: 20150721
  Serious: No
  Sender: FDA-Public Use
  Company Number: US-GLAXOSMITHKLINE-A1083937A

PATIENT

DRUGS (2)
  1. DRUG NAME UNKNOWN [Suspect]
     Active Substance: UNSPECIFIED INGREDIENT
  2. NICODERM CQ [Suspect]
     Active Substance: NICOTINE
     Indication: SMOKING CESSATION THERAPY
     Route: 062

REACTIONS (14)
  - Nervousness [Not Recovered/Not Resolved]
  - Malaise [Unknown]
  - Application site reaction [Unknown]
  - Application site papules [Unknown]
  - Application site exfoliation [Unknown]
  - Dyspnoea [Unknown]
  - Anxiety [Unknown]
  - Application site warmth [Unknown]
  - Application site perspiration [Unknown]
  - Application site rash [Unknown]
  - Application site discolouration [Unknown]
  - Pain in extremity [Unknown]
  - Application site pain [Unknown]
  - Diarrhoea [Unknown]

NARRATIVE: CASE EVENT DATE: 20140707
